FAERS Safety Report 25642293 (Version 1)
Quarter: 2025Q3

REPORT INFORMATION
  Report Type: Spontaneous
  Country: CA (occurrence: CA)
  Receive Date: 20250805
  Receipt Date: 20250805
  Transmission Date: 20251020
  Serious: No
  Sender: ALKEM
  Company Number: CA-ALKEM LABORATORIES LIMITED-CA-ALKEM-2025-05609

PATIENT
  Age: 5 Decade
  Sex: Female

DRUGS (3)
  1. MYCOPHENOLATE MOFETIL [Suspect]
     Active Substance: MYCOPHENOLATE MOFETIL
     Indication: Scleroderma
     Route: 065
  2. ROFLUMILAST [Suspect]
     Active Substance: ROFLUMILAST
     Indication: Scleroderma
     Route: 061
  3. METHOTREXATE [Suspect]
     Active Substance: METHOTREXATE
     Indication: Scleroderma
     Route: 065

REACTIONS (1)
  - Treatment failure [Unknown]
